FAERS Safety Report 8949055 (Version 1)
Quarter: 2012Q4

REPORT INFORMATION
  Report Type: 
  Country: CA (occurrence: CA)
  Receive Date: 20121206
  Receipt Date: 20121206
  Transmission Date: 20130627
  Serious: Yes (Other)
  Sender: FDA-Public Use
  Company Number: CA-ROCHE-1164089

PATIENT
  Sex: Female

DRUGS (2)
  1. XOLAIR [Suspect]
     Indication: PRODUCT USED FOR UNKNOWN INDICATION
     Route: 065
     Dates: start: 20061128
  2. EPIPEN [Concomitant]

REACTIONS (6)
  - Asthma [Unknown]
  - Bronchitis [Unknown]
  - Respiratory tract infection [Unknown]
  - Back pain [Unknown]
  - Sinus congestion [Unknown]
  - Epistaxis [Unknown]
